FAERS Safety Report 8163216-7 (Version None)
Quarter: 2012Q1

REPORT INFORMATION
  Report Type: 
  Country: None (occurrence: None)
  Receive Date: 20120224
  Receipt Date: 20110621
  Transmission Date: 20120608
  Serious: No
  Sender: FDA-Public Use
  Company Number: US-PFIZER INC-K201100740

PATIENT
  Sex: Female
  Weight: 90.703 kg

DRUGS (1)
  1. FLECTOR [Suspect]
     Indication: BACK PAIN
     Dosage: 1 PATCH, SINGLE
     Route: 061
     Dates: start: 20110620, end: 20110620

REACTIONS (1)
  - CHEST DISCOMFORT [None]
